FAERS Safety Report 8196747-4 (Version None)
Quarter: 2012Q1

REPORT INFORMATION
  Report Type: 
  Country: None (occurrence: None)
  Receive Date: 20120307
  Receipt Date: 20120222
  Transmission Date: 20120608
  Serious: Yes (Other)
  Sender: FDA-Public Use
  Company Number: KAD201202-000148

PATIENT
  Age: 53 Year
  Sex: Male
  Weight: 90.7194 kg

DRUGS (4)
  1. RIBAVIRIN [Suspect]
     Dosage: 1200 MG; 600 MG AM AND 600 MG PM
  2. DEXILANT [Concomitant]
  3. INCIVEK [Suspect]
     Dosage: 750 MG ORALLY THREE TIMES A DAY
  4. PEGASYS [Suspect]
     Dosage: 180 MCG SUBCUTANEOUS/WEEK
     Route: 058

REACTIONS (6)
  - PLATELET COUNT DECREASED [None]
  - RASH [None]
  - HEART RATE DECREASED [None]
  - NAUSEA [None]
  - VOMITING [None]
  - ORAL HERPES [None]
